FAERS Safety Report 4398871-0 (Version None)
Quarter: 2004Q3

REPORT INFORMATION
  Report Type: 
  Country: None (occurrence: None)
  Receive Date: 20040712
  Receipt Date: 20040621
  Transmission Date: 20050211
  Serious: Yes (Hospitalization, Other)
  Sender: FDA-Public Use
  Company Number: USA040670602

PATIENT
  Age: 79 Year
  Sex: Male
  Weight: 81 kg

DRUGS (3)
  1. HUMALOG [Suspect]
     Indication: DIABETES MELLITUS
     Dosage: 40 U DAY
     Dates: start: 19970101
  2. INSULIN [Suspect]
     Indication: DIABETES MELLITUS
     Dates: start: 19670101, end: 19970101
  3. LANTUS [Concomitant]

REACTIONS (11)
  - ABDOMINAL NEOPLASM [None]
  - AMNESIA [None]
  - ANAEMIA [None]
  - BLOOD GLUCOSE INCREASED [None]
  - CEREBROVASCULAR ACCIDENT [None]
  - DYSPEPSIA [None]
  - HYPERTENSION [None]
  - PHARMACEUTICAL PRODUCT COMPLAINT [None]
  - TUMOUR HAEMORRHAGE [None]
  - VISUAL ACUITY REDUCED [None]
  - VOLUME BLOOD DECREASED [None]
